FAERS Safety Report 16761800 (Version 1)
Quarter: 2019Q3

REPORT INFORMATION
  Report Type: Spontaneous
  Country: US (occurrence: US)
  Receive Date: 20190830
  Receipt Date: 20190830
  Transmission Date: 20191005
  Serious: No
  Sender: FDA-Public Use
  Company Number: US-SA-2019SA239176

PATIENT
  Age: 70 Year
  Sex: Female
  Weight: 68 kg

DRUGS (20)
  1. SODIUM CHLORIDE. [Concomitant]
     Active Substance: SODIUM CHLORIDE
     Dosage: 0.90 %
     Route: 042
     Dates: start: 20190516
  2. ASPIRIN [ACETYLSALICYLIC ACID] [Concomitant]
     Active Substance: ASPIRIN
     Dosage: 81 MG, QD
     Route: 048
     Dates: start: 20190726
  3. PROTONIX [OMEPRAZOLE] [Concomitant]
     Active Substance: OMEPRAZOLE
     Dosage: 1 DF, QD
     Route: 048
     Dates: start: 20170927
  4. LISINOPRIL. [Concomitant]
     Active Substance: LISINOPRIL
     Dosage: 1 DF, PM
     Route: 048
     Dates: start: 20170927
  5. SYSTANE (HYPROMELLOSE 2910 (4000 MPA.S)) [Concomitant]
     Active Substance: HYPROMELLOSE 2910 (4000 MPA.S)
     Dosage: 1 GTT DROPS, QID
     Route: 047
     Dates: start: 20180712
  6. XARELTO [Concomitant]
     Active Substance: RIVAROXABAN
     Dosage: 1 DF, QD
     Route: 048
     Dates: start: 20170927
  7. AMIODARONE HCL [Concomitant]
     Active Substance: AMIODARONE HYDROCHLORIDE
     Dosage: 1 DF, TID
     Route: 048
     Dates: start: 20190625
  8. POTASSIUM CHLORIDE. [Concomitant]
     Active Substance: POTASSIUM CHLORIDE
     Dosage: 1 DF, QD
     Route: 048
     Dates: start: 20190516
  9. METOPROLOL SUCC CT [Concomitant]
     Active Substance: METOPROLOL SUCCINATE
     Dosage: 100 MG, QD
     Route: 048
     Dates: start: 20190321
  10. IRON [Concomitant]
     Active Substance: IRON
     Dosage: 1 DF, QD
     Route: 048
     Dates: start: 20170927
  11. SHINGRIX [Concomitant]
     Active Substance: RECOMBINANT VARICELLA ZOSTER VIRUS (VZV) GLYCOPROTEIN E
     Dosage: 2 INJECTION
     Route: 030
     Dates: start: 20170718
  12. EPINEPHRINE. [Concomitant]
     Active Substance: EPINEPHRINE
     Dosage: 0.3 MG, PRN
     Route: 030
     Dates: start: 20190516
  13. PRAVASTATIN. [Concomitant]
     Active Substance: PRAVASTATIN
     Dosage: 40 MG, QD
     Route: 048
     Dates: start: 20190516
  14. FABRAZYME [Suspect]
     Active Substance: AGALSIDASE BETA
     Indication: FABRY^S DISEASE
     Dosage: 75 MG, QOW
     Route: 041
     Dates: start: 20040630
  15. PRENATAL [ASCORBIC ACID;FERROUS FUMARATE;FOLIC ACID;RETINOL] [Concomitant]
     Dosage: 1 DF, QD
     Route: 048
     Dates: start: 20170510
  16. DIPHENHYDRAMINE. [Concomitant]
     Active Substance: DIPHENHYDRAMINE
     Dosage: 50 MG, PRN
     Route: 042
     Dates: start: 20190516
  17. NORMAL SALINE [Concomitant]
     Active Substance: SODIUM CHLORIDE
     Dosage: 0.90 %
     Route: 042
     Dates: start: 20190516
  18. ESTRADIOL. [Concomitant]
     Active Substance: ESTRADIOL
     Dosage: 1 DF, QD
     Route: 048
     Dates: start: 20170927
  19. SOLU-MEDROL [Concomitant]
     Active Substance: METHYLPREDNISOLONE SODIUM SUCCINATE
     Dosage: 125 MG, PRN
     Route: 042
     Dates: start: 20190516
  20. VITAMIN B12 [Concomitant]
     Active Substance: CYANOCOBALAMIN
     Dosage: 1000 UG, QD
     Route: 048
     Dates: start: 20170510

REACTIONS (1)
  - Bronchitis [Unknown]

NARRATIVE: CASE EVENT DATE: 20190813
